FAERS Safety Report 4822693-7 (Version None)
Quarter: 2005Q4

REPORT INFORMATION
  Report Type: 
  Country: None (occurrence: None)
  Receive Date: 20051104
  Receipt Date: 20051031
  Transmission Date: 20060501
  Serious: Yes (Death)
  Sender: FDA-Public Use
  Company Number: 05-055B

PATIENT
  Age: 40 Year
  Sex: Female

DRUGS (1)
  1. LORCET 10/650MG (HYDROCODONE BITARTRATE/ACETAMINOPHEN) TABLETS [Suspect]

REACTIONS (1)
  - DRUG TOXICITY [None]
